FAERS Safety Report 4330772-6 (Version None)
Quarter: 2004Q1

REPORT INFORMATION
  Report Type: 
  Country: None (occurrence: None)
  Receive Date: 20040331
  Receipt Date: 20040316
  Transmission Date: 20041129
  Serious: Yes (Hospitalization, Disabling, Other)
  Sender: FDA-Public Use
  Company Number: US_0403101665

PATIENT
  Age: 38 Year
  Sex: Female
  Weight: 73 kg

DRUGS (8)
  1. HUMALOG [Suspect]
     Indication: DIABETES MELLITUS
     Dosage: 5 U
     Dates: start: 19970101
  2. HUMULIN N [Suspect]
     Indication: BLOOD GLUCOSE INCREASED
     Dosage: 50 U DAY
     Dates: start: 19800101
  3. LASIX [Concomitant]
  4. ZESTRIL [Concomitant]
  5. LIPITOR [Concomitant]
  6. MULTI-VITAMIN [Concomitant]
  7. HUMULIN R [Suspect]
     Indication: BLOOD GLUCOSE INCREASED
     Dates: start: 19750101, end: 19970101
  8. HUMULIN 70/30 [Suspect]
     Indication: DIABETES MELLITUS
     Dates: start: 19910101, end: 19920101

REACTIONS (13)
  - ABORTION SPONTANEOUS [None]
  - BLOOD GLUCOSE DECREASED [None]
  - BURSITIS [None]
  - COMPLICATIONS OF MATERNAL EXPOSURE TO THERAPEUTIC DRUGS [None]
  - CYSTITIS [None]
  - LOSS OF CONSCIOUSNESS [None]
  - MATERNAL DRUGS AFFECTING FOETUS [None]
  - NERVE INJURY [None]
  - NEUROPATHY [None]
  - RENAL FAILURE [None]
  - RETINOPATHY [None]
  - TENDONITIS [None]
  - VULVAL CANCER [None]
